FAERS Safety Report 6557501-X (Version None)
Quarter: 2010Q1

REPORT INFORMATION
  Report Type: 
  Country: None (occurrence: None)
  Receive Date: 20100128
  Receipt Date: 20100128
  Transmission Date: 20100710
  Serious: No
  Sender: FDA-Public Use
  Company Number: None

PATIENT

DRUGS (2)
  1. EFUDEX [Suspect]
     Indication: ACTINIC KERATOSIS
     Dosage: DAB ON VARIOUS FACIAL AREAS 2X DAILY EXTERNAL
     Dates: start: 20100104, end: 20100117
  2. EFUDEX [Suspect]
     Indication: SKIN CANCER
     Dosage: DAB ON VARIOUS FACIAL AREAS 2X DAILY EXTERNAL
     Dates: start: 20100104, end: 20100117

REACTIONS (3)
  - DIZZINESS [None]
  - DRUG LEVEL INCREASED [None]
  - WRONG TECHNIQUE IN DRUG USAGE PROCESS [None]
